FAERS Safety Report 24292607 (Version 1)
Quarter: 2024Q3

REPORT INFORMATION
  Report Type: Spontaneous
  Country: IT (occurrence: None)
  Receive Date: 20240906
  Receipt Date: 20240906
  Transmission Date: 20241017
  Serious: Yes (Life-Threatening, Hospitalization, Disabling)
  Sender: ASTRAZENECA
  Company Number: 2024A199927

PATIENT
  Age: 60 Year
  Sex: Male
  Weight: 94 kg

DRUGS (8)
  1. DAPAGLIFLOZIN [Suspect]
     Active Substance: DAPAGLIFLOZIN
     Indication: Insulin-requiring type 2 diabetes mellitus
     Dosage: 10 MG DAILY
     Route: 048
  2. TRESIBA [Concomitant]
     Active Substance: INSULIN DEGLUDEC
     Route: 058
  3. ASPIRIN [Concomitant]
     Active Substance: ASPIRIN
     Route: 048
  4. OLMESARTAN MEDOXOMIL [Concomitant]
     Active Substance: OLMESARTAN MEDOXOMIL
     Route: 048
  5. HUMALOG [Concomitant]
     Active Substance: INSULIN LISPRO
  6. METFORMIN [Concomitant]
     Active Substance: METFORMIN HYDROCHLORIDE
  7. DULOXETINE [Concomitant]
     Active Substance: DULOXETINE
  8. ATORVASTATIN [Concomitant]
     Active Substance: ATORVASTATIN
     Route: 048

REACTIONS (1)
  - Necrotising fasciitis [Not Recovered/Not Resolved]
